FAERS Safety Report 25091246 (Version 1)
Quarter: 2025Q1

REPORT INFORMATION
  Report Type: Spontaneous
  Country: US (occurrence: US)
  Receive Date: 20250318
  Receipt Date: 20250318
  Transmission Date: 20250408
  Serious: Yes (Other)
  Sender: ALEXION PHARMACEUTICALS
  Company Number: US-AstraZeneca-CH-00825175A

PATIENT
  Age: 69 Year

DRUGS (3)
  1. CRESTOR [Suspect]
     Active Substance: ROSUVASTATIN CALCIUM
     Route: 065
  2. CRESTOR [Suspect]
     Active Substance: ROSUVASTATIN CALCIUM
     Route: 065
  3. REPATHA [Concomitant]
     Active Substance: EVOLOCUMAB
     Dosage: UNK, 2 TIMES A MONTH
     Route: 065

REACTIONS (4)
  - Low density lipoprotein increased [Unknown]
  - Coronary artery occlusion [Unknown]
  - Arthralgia [Unknown]
  - Blood creatine phosphokinase increased [Unknown]
